FAERS Safety Report 9880579 (Version 2)
Quarter: 2014Q2

REPORT INFORMATION
  Report Type: Spontaneous
  Country: JP (occurrence: None)
  Receive Date: 20140205
  Receipt Date: 20140506
  Transmission Date: 20141212
  Serious: Yes (Hospitalization, Other)
  Sender: FDA-Public Use
  Company Number: 2014-000200

PATIENT
  Age: 79 Year
  Sex: Female

DRUGS (1)
  1. ACTONEL (RISEDRONATE SODIUM) TABLET, 2.5MG [Suspect]
     Indication: OSTEOPOROSIS
     Route: 048

REACTIONS (7)
  - Fall [None]
  - Atypical femur fracture [None]
  - Joint injury [None]
  - Pathological fracture [None]
  - Gait disturbance [None]
  - Gait disturbance [None]
  - Gait disturbance [None]
